FAERS Safety Report 24195402 (Version 1)
Quarter: 2024Q3

REPORT INFORMATION
  Report Type: Spontaneous
  Country: US (occurrence: US)
  Receive Date: 20240809
  Receipt Date: 20240809
  Transmission Date: 20241016
  Serious: No
  Sender: EMD SERONO INC
  Company Number: US-Merck Healthcare KGaA-2024041611

PATIENT
  Age: 50 Year
  Sex: Male

DRUGS (1)
  1. SEROSTIM [Suspect]
     Active Substance: SOMATROPIN
     Indication: HIV infection
     Dosage: EXPIRY DATE: 31 JAN 2027
     Route: 058

REACTIONS (3)
  - Mania [Unknown]
  - Blood pressure increased [Unknown]
  - Illness [Unknown]
